FAERS Safety Report 14436571 (Version 1)
Quarter: 2018Q1

REPORT INFORMATION
  Report Type: Spontaneous
  Country: US (occurrence: US)
  Receive Date: 20180124
  Receipt Date: 20180124
  Transmission Date: 20180509
  Serious: No
  Sender: FDA-Public Use
  Company Number: None

PATIENT
  Age: 75 Year
  Sex: Male

DRUGS (15)
  1. ASPIRIN CHEW [Concomitant]
  2. CALCIUM [Concomitant]
     Active Substance: CALCIUM
  3. FISH OIL [Concomitant]
     Active Substance: FISH OIL
  4. AMLODIPINE [Concomitant]
     Active Substance: AMLODIPINE BESYLATE
  5. BENADRYL ALLERGY [Concomitant]
     Active Substance: DIPHENHYDRAMINE HYDROCHLORIDE
  6. ELIGARD [Concomitant]
     Active Substance: LEUPROLIDE ACETATE
  7. IRON [Concomitant]
     Active Substance: IRON
  8. MULTI VITAMIN TAB MINERALS [Concomitant]
  9. ZYTIGA [Suspect]
     Active Substance: ABIRATERONE ACETATE
     Indication: PROSTATE CANCER
     Route: 048
     Dates: start: 20160812
  10. LORAZEPAM. [Concomitant]
     Active Substance: LORAZEPAM
  11. PREDNISONE. [Concomitant]
     Active Substance: PREDNISONE
  12. TRAZODONE [Concomitant]
     Active Substance: TRAZODONE HYDROCHLORIDE
  13. ATORVASTATIN [Concomitant]
     Active Substance: ATORVASTATIN
  14. DULOXETINE. [Concomitant]
     Active Substance: DULOXETINE
  15. GLUCOSAMINE [Concomitant]
     Active Substance: GLUCOSAMINE

REACTIONS (2)
  - Gastrointestinal haemorrhage [None]
  - Diarrhoea [None]
